FAERS Safety Report 18980453 (Version 2)
Quarter: 2022Q3

REPORT INFORMATION
  Report Type: Spontaneous
  Country: CH (occurrence: CH)
  Receive Date: 20210308
  Receipt Date: 20220820
  Transmission Date: 20221027
  Serious: Yes (Hospitalization, Other)
  Sender: FDA-Public Use
  Company Number: None

PATIENT
  Age: 47 Year
  Sex: Female

DRUGS (9)
  1. CLOZAPINE [Suspect]
     Active Substance: CLOZAPINE
     Indication: Product used for unknown indication
     Dosage: 200 MILLIGRAM DAILY; DURATION : 1 MONTH
     Dates: start: 202011, end: 20201208
  2. CLOZAPINE [Suspect]
     Active Substance: CLOZAPINE
     Dosage: UNIT DOSE : 200 MG, FREQUENCY TIME : 1 DAY, DURATION: 55 DAYS
     Dates: start: 20201208, end: 20210201
  3. CLOZAPINE [Suspect]
     Active Substance: CLOZAPINE
     Dosage: UNIT DOSE: 225 MG, FREQUENCY TIME : 1 DAY, DURATION : 1 DAY
     Dates: start: 20210202, end: 20210203
  4. CLOZAPINE [Suspect]
     Active Substance: CLOZAPINE
     Dosage: THERAPY END DATE : NASK, FREQUENCY TIME : 1 DAY, UNIT DOSE : 200 MG
     Dates: start: 20210204
  5. CLOZAPINE [Suspect]
     Active Substance: CLOZAPINE
     Dosage: THERAPY START DATE : NASK
     Dates: end: 202011
  6. LAMOTRIGINE [Concomitant]
     Active Substance: LAMOTRIGINE
     Indication: Product used for unknown indication
  7. ALPRAZOLAM [Concomitant]
     Active Substance: ALPRAZOLAM
     Indication: Product used for unknown indication
  8. SERTRALINE [Concomitant]
     Active Substance: SERTRALINE HYDROCHLORIDE
     Indication: Product used for unknown indication
  9. ZOLPIDEM [Concomitant]
     Active Substance: ZOLPIDEM TARTRATE
     Indication: Product used for unknown indication
     Dosage: AS NECESSARY

REACTIONS (2)
  - Dyskinesia [Recovering/Resolving]
  - Eye movement disorder [Recovered/Resolved]

NARRATIVE: CASE EVENT DATE: 20210130
